FAERS Safety Report 10926271 (Version 1)
Quarter: 2015Q1

REPORT INFORMATION
  Report Type: Spontaneous
  Country: FR (occurrence: None)
  Receive Date: 20150316
  Receipt Date: 20150316
  Transmission Date: 20150721
  Serious: Yes (Death)
  Sender: FDA-Public Use
  Company Number: 2015FE00777

PATIENT
  Age: 27 Year
  Sex: Female

DRUGS (4)
  1. MENOPUR [Suspect]
     Active Substance: FOLLICLE STIMULATING HORMONE BETA POLYPEPTIDE\LUTROPIN ALFA
     Indication: IN VITRO FERTILISATION
  2. GONAL-F [Suspect]
     Active Substance: FOLLITROPIN
     Indication: IN VITRO FERTILISATION
  3. DECAPEPTYL [Suspect]
     Active Substance: TRIPTORELIN ACETATE
     Indication: IN VITRO FERTILISATION
  4. CHORIOGONADOTROPINE ALFA [Suspect]
     Active Substance: CHORIOGONADOTROPIN ALFA
     Indication: IN VITRO FERTILISATION

REACTIONS (7)
  - Ovarian hyperstimulation syndrome [None]
  - Vomiting [None]
  - Intracranial pressure increased [None]
  - Brain herniation [None]
  - Cerebral infarction [None]
  - Abdominal pain [None]
  - Dyspepsia [None]
